FAERS Safety Report 7057869-4 (Version None)
Quarter: 2010Q4

REPORT INFORMATION
  Report Type: 
  Country: None (occurrence: None)
  Receive Date: 20101022
  Receipt Date: 20101014
  Transmission Date: 20110411
  Serious: Yes (Other)
  Sender: FDA-Public Use
  Company Number: US-PFIZER INC-2010115589

PATIENT
  Sex: Female
  Weight: 87 kg

DRUGS (9)
  1. CHANTIX [Suspect]
     Indication: SMOKING CESSATION THERAPY
     Dosage: 0.5 MG, 1X/DAY
     Route: 048
     Dates: start: 20070101
  2. CHANTIX [Suspect]
     Dosage: 1 MG, 2X/DAY
     Route: 048
     Dates: start: 20080101, end: 20080101
  3. CHANTIX [Suspect]
     Dosage: 0.5 MG, 1X/DAY
     Route: 048
     Dates: start: 20100903
  4. CHANTIX [Suspect]
     Dosage: 1 MG, 2X/DAY
     Route: 048
     Dates: start: 20100901
  5. CHANTIX [Suspect]
     Dosage: 1 MG, UNK DAILY
     Route: 048
     Dates: start: 20101001
  6. PAXIL [Suspect]
     Indication: DEPRESSION
     Dosage: UNK MG, 1X/DAY
     Route: 048
  7. PAXIL [Suspect]
     Indication: ANXIETY
     Dosage: 30 MG, UNK DAILY
     Route: 048
     Dates: start: 20070101
  8. WELLBUTRIN [Suspect]
     Indication: DEPRESSION
     Dosage: UNK MG, 1X/DAY
  9. WELLBUTRIN [Suspect]
     Indication: ANXIETY
     Dosage: 100 MG, UNK DAILY
     Dates: start: 20070101

REACTIONS (2)
  - DEPRESSION [None]
  - VASOCONSTRICTION [None]
